FAERS Safety Report 4485090-2 (Version None)
Quarter: 2004Q4

REPORT INFORMATION
  Report Type: 
  Country: None (occurrence: None)
  Receive Date: 20041026
  Receipt Date: 20030912
  Transmission Date: 20050328
  Serious: No
  Sender: FDA-Public Use
  Company Number: US-BRISTOL-MYERS SQUIBB COMPANY-12381729

PATIENT
  Age: 60 Year
  Sex: Female

DRUGS (4)
  1. GLUCOPHAGE XR [Suspect]
     Indication: DIABETES MELLITUS
     Route: 048
     Dates: start: 20030801, end: 20031019
  2. VIOXX [Concomitant]
  3. LIPITOR [Concomitant]
  4. ALTACE [Concomitant]

REACTIONS (8)
  - ABDOMINAL PAIN UPPER [None]
  - BACK PAIN [None]
  - BLOOD GLUCOSE INCREASED [None]
  - DYSPNOEA [None]
  - INSOMNIA [None]
  - MYALGIA [None]
  - POSTMENOPAUSAL HAEMORRHAGE [None]
  - SOMNOLENCE [None]
